FAERS Safety Report 7311514-9 (Version None)
Quarter: 2011Q1

REPORT INFORMATION
  Report Type: 
  Country: None (occurrence: None)
  Receive Date: 20110224
  Receipt Date: 20110214
  Transmission Date: 20110831
  Serious: Yes (Other)
  Sender: FDA-Public Use
  Company Number: PHHY2011BR12785

PATIENT
  Sex: Male

DRUGS (10)
  1. METFORMINE ^MERCK^ [Concomitant]
     Indication: DIABETES MELLITUS
     Dosage: UNK MG, TWO TABLETS DAILY
     Route: 048
     Dates: start: 20010101
  2. DIOVAN HCT [Suspect]
     Indication: HYPERTENSION
     Dosage: 160/12.5 MG, ONE TABLET DAILY
     Route: 048
     Dates: start: 20060101, end: 20110207
  3. SELOKEN [Suspect]
     Dosage: 100 MG, ONE TABLET DAILY
     Dates: start: 20110207
  4. ALLOPURINOL [Concomitant]
     Indication: BLOOD URIC ACID INCREASED
     Dosage: 300 MG, A HALF TABLET DAILY
     Route: 048
     Dates: start: 20010101
  5. SELOKEN [Suspect]
     Indication: HEART RATE ABNORMAL
     Dosage: 100 MG, ONE TABLET AND A HALF DAILY
     Dates: start: 20070101
  6. AAS [Concomitant]
     Indication: BLOOD DISORDER
     Dosage: 100 MG, TWO TABLETS DAILY
     Route: 048
     Dates: start: 20050101
  7. DAIVOBET [Concomitant]
     Indication: PSORIASIS
     Dosage: BID
     Route: 061
     Dates: start: 20080101
  8. METHOTREXATE [Concomitant]
     Indication: RHEUMATOID ARTHRITIS
     Dosage: 10 MG, ONE CAPSULE DAILY
     Route: 048
     Dates: start: 20100801
  9. FOLIC ACID [Concomitant]
     Indication: RHEUMATOID ARTHRITIS
     Dosage: 10 MG, ONE CAPSULE DAILY
     Route: 048
     Dates: start: 20100801
  10. LIPITOR [Concomitant]
     Indication: BLOOD CHOLESTEROL
     Dosage: 10 MG, ONE TABLET DAILY
     Route: 048
     Dates: start: 20070101

REACTIONS (3)
  - DIZZINESS [None]
  - VEIN DISORDER [None]
  - HYPOTENSION [None]
